FAERS Safety Report 9142086 (Version 1)
Quarter: 2013Q1

REPORT INFORMATION
  Report Type: Spontaneous
  Country: US (occurrence: US)
  Receive Date: 20130305
  Receipt Date: 20130305
  Transmission Date: 20140127
  Serious: No
  Sender: FDA-Public Use
  Company Number: US-AMGEN-USASP2013012271

PATIENT
  Age: 55 Year
  Sex: Male
  Weight: 108.84 kg

DRUGS (2)
  1. ENBREL [Suspect]
     Indication: PSORIATIC ARTHROPATHY
     Dosage: UNK
  2. ASPIRIN [Concomitant]
     Dosage: 325 MG, UNK

REACTIONS (1)
  - Therapeutic response decreased [Unknown]
